FAERS Safety Report 23040197 (Version 1)
Quarter: 2023Q4

REPORT INFORMATION
  Report Type: Spontaneous
  Country: US (occurrence: None)
  Receive Date: 20231006
  Receipt Date: 20231006
  Transmission Date: 20240110
  Serious: Yes (Life-Threatening, Hospitalization)
  Sender: FDA-Public Use
  Company Number: 2023A226877

PATIENT
  Age: 38 Year
  Sex: Female

DRUGS (3)
  1. QUETIAPINE [Suspect]
     Active Substance: QUETIAPINE
     Route: 048
  2. VALPROIC ACID [Suspect]
     Active Substance: VALPROIC ACID
  3. AMPHETAMINE [Suspect]
     Active Substance: AMPHETAMINE

REACTIONS (6)
  - Suicide attempt [Unknown]
  - Overdose [Unknown]
  - Pneumonia staphylococcal [Unknown]
  - Cardiac arrest [Unknown]
  - Hypoxia [Unknown]
  - Anxiety [Unknown]
